FAERS Safety Report 19219340 (Version 1)
Quarter: 2021Q2

REPORT INFORMATION
  Report Type: Spontaneous
  Country: US (occurrence: US)
  Receive Date: 20210506
  Receipt Date: 20210506
  Transmission Date: 20210717
  Serious: No
  Sender: FDA-Public Use
  Company Number: US-ROCHE-2622489

PATIENT
  Sex: Female

DRUGS (18)
  1. ASPIRIN. [Concomitant]
     Active Substance: ASPIRIN
  2. MONTELUCAST [Concomitant]
     Active Substance: MONTELUKAST SODIUM
  3. ROPINIROLE. [Concomitant]
     Active Substance: ROPINIROLE
  4. BUPROPION. [Concomitant]
     Active Substance: BUPROPION
  5. CELECOXIB. [Concomitant]
     Active Substance: CELECOXIB
  6. ESCITALOPRAM [Concomitant]
     Active Substance: ESCITALOPRAM OXALATE
  7. ROSUVASTATIN. [Concomitant]
     Active Substance: ROSUVASTATIN
  8. VENTOLIN [Concomitant]
     Active Substance: ALBUTEROL SULFATE
  9. CITALOPRAM [Concomitant]
     Active Substance: CITALOPRAM HYDROBROMIDE
  10. ISOSORBIDE MN [Concomitant]
     Active Substance: ISOSORBIDE MONONITRATE
  11. METOPROLOL. [Concomitant]
     Active Substance: METOPROLOL
  12. CLOPIDOGREL [Concomitant]
     Active Substance: CLOPIDOGREL BISULFATE
  13. PANTOPRAZOLE [Concomitant]
     Active Substance: PANTOPRAZOLE
  14. TRAMADOL HYDROCHLORIDE. [Concomitant]
     Active Substance: TRAMADOL HYDROCHLORIDE
  15. ESBRIET [Suspect]
     Active Substance: PIRFENIDONE
     Indication: GASTROOESOPHAGEAL REFLUX DISEASE
     Route: 048
  16. CYCLOBENZAPRIN [Concomitant]
     Active Substance: CYCLOBENZAPRINE
  17. IPRATROPIUM [Concomitant]
     Active Substance: IPRATROPIUM
  18. LYRICA [Concomitant]
     Active Substance: PREGABALIN

REACTIONS (3)
  - Rash macular [Recovered/Resolved]
  - Off label use [Unknown]
  - Intentional product use issue [Unknown]
